FAERS Safety Report 17002389 (Version 1)
Quarter: 2019Q4

REPORT INFORMATION
  Report Type: Spontaneous
  Country: TR (occurrence: TR)
  Receive Date: 20191107
  Receipt Date: 20191107
  Transmission Date: 20200122
  Serious: Yes (Hospitalization, Other)
  Sender: FDA-Public Use
  Company Number: TR-ALEMBIC PHARMACUETICALS LIMITED-2019SCAL000837

PATIENT

DRUGS (2)
  1. MODAFINIL. [Suspect]
     Active Substance: MODAFINIL
     Indication: HYPERSOMNIA
     Dosage: 100 MILLIGRAM, OD
  2. MODAFINIL. [Suspect]
     Active Substance: MODAFINIL
     Dosage: 200 MILLIGRAM, OD (ONE MONTH LATER BECAUSE OF PARTIAL RESPONSE IT WAS RAISED TO 200 MG/DAY)

REACTIONS (14)
  - Toxic encephalopathy [Unknown]
  - Eating disorder [Unknown]
  - Intentional overdose [Unknown]
  - Altered state of consciousness [Unknown]
  - Depression [Unknown]
  - Psychotic disorder [Recovering/Resolving]
  - Transient psychosis [Recovering/Resolving]
  - Suicide attempt [Unknown]
  - Personality change [Unknown]
  - Anxiety [Unknown]
  - Cognitive disorder [Unknown]
  - Toxicity to various agents [Unknown]
  - Hallucinations, mixed [Recovered/Resolved]
  - Lethargy [Recovered/Resolved]
